FAERS Safety Report 7425434-2 (Version None)
Quarter: 2011Q2

REPORT INFORMATION
  Report Type: 
  Country: None (occurrence: None)
  Receive Date: 20110415
  Receipt Date: 20110415
  Transmission Date: 20111010
  Serious: Yes (Life-Threatening, Other)
  Sender: FDA-Public Use
  Company Number: None

PATIENT
  Age: 54 Year
  Sex: Female
  Weight: 102.0593 kg

DRUGS (4)
  1. NEXIUM [Suspect]
     Indication: HERNIA
     Dates: start: 20080101, end: 20091001
  2. NEXIUM [Suspect]
     Indication: ULCER
     Dates: start: 20080101, end: 20091001
  3. SEROQUEL [Suspect]
     Indication: PSYCHOTIC DISORDER
     Dates: start: 20101001, end: 20110115
  4. SEROQUEL [Suspect]
     Indication: SLEEP TERROR
     Dates: start: 20101001, end: 20110115

REACTIONS (8)
  - PELVIC PAIN [None]
  - GROIN PAIN [None]
  - INSOMNIA [None]
  - MUSCULAR WEAKNESS [None]
  - SKIN EXFOLIATION [None]
  - SKIN DISCOLOURATION [None]
  - BALANCE DISORDER [None]
  - MOBILITY DECREASED [None]
